FAERS Safety Report 7807489 (Version 4)
Quarter: 2013Q3

REPORT INFORMATION
  Report Type: Report from Study
  Country: NL (occurrence: NL)
  Receive Date: 20110210
  Receipt Date: 20130924
  Transmission Date: 20140515
  Serious: Yes (Hospitalization)
  Sender: FDA-Public Use
  Company Number: NL-MEDIMMUNE-MEDI-0012442

PATIENT
  Age: 1 Year
  Sex: Male
  Weight: 2.7 kg

DRUGS (1)
  1. SYNAGIS [Suspect]
     Indication: ANTIVIRAL PROPHYLAXIS
     Route: 030
     Dates: start: 20110113, end: 20110113

REACTIONS (14)
  - Pallor [Recovered/Resolved]
  - Skin discolouration [Recovered/Resolved]
  - Malaise [Recovered/Resolved]
  - Dyspnoea [Unknown]
  - Cough [Recovered/Resolved]
  - Nasopharyngitis [Recovered/Resolved]
  - Respiratory syncytial virus infection [Recovered/Resolved]
  - Malabsorption [Recovered/Resolved]
  - Restlessness [Unknown]
  - Apnoea [Recovered/Resolved]
  - Dyspnoea [Recovered/Resolved]
  - Tracheal stenosis [Unknown]
  - Pharyngeal oedema [Recovered/Resolved]
  - Infantile spitting up [Recovered/Resolved]
